FAERS Safety Report 25150220 (Version 2)
Quarter: 2025Q2

REPORT INFORMATION
  Report Type: Spontaneous
  Country: AR (occurrence: AR)
  Receive Date: 20250402
  Receipt Date: 20250428
  Transmission Date: 20250717
  Serious: Yes (Hospitalization, Other)
  Sender: PFIZER
  Company Number: AR-PFIZER INC-202400322290

PATIENT
  Age: 45 Year
  Sex: Male

DRUGS (1)
  1. LORLATINIB [Suspect]
     Active Substance: LORLATINIB
     Indication: Lung cancer metastatic
     Dosage: 100 MG, DAILY
     Dates: start: 20240420

REACTIONS (5)
  - Second primary malignancy [Unknown]
  - Neoplasm malignant [Unknown]
  - Metastases to central nervous system [Unknown]
  - Metastasis [Unknown]
  - Fatigue [Unknown]
